FAERS Safety Report 22000994 (Version 1)
Quarter: 2023Q1

REPORT INFORMATION
  Report Type: Spontaneous
  Country: US (occurrence: US)
  Receive Date: 20230216
  Receipt Date: 20230216
  Transmission Date: 20230417
  Serious: No
  Sender: FDA-Public Use
  Company Number: US-FERRINGPH-2022FE01389

PATIENT
  Sex: Male

DRUGS (2)
  1. NOCDURNA [Suspect]
     Active Substance: DESMOPRESSIN ACETATE
     Indication: Product used for unknown indication
     Dosage: 27.7 MCG, 1 TABLET DAILY
     Route: 060
  2. NOCDURNA [Suspect]
     Active Substance: DESMOPRESSIN ACETATE
     Dosage: 27.7 MCG, 2 TABLETS DAILY
     Route: 060

REACTIONS (2)
  - Middle insomnia [Unknown]
  - Therapeutic response increased [Unknown]
